FAERS Safety Report 11311360 (Version 6)
Quarter: 2021Q3

REPORT INFORMATION
  Report Type: Report from Study
  Country: CA (occurrence: CA)
  Receive Date: 20150727
  Receipt Date: 20210723
  Transmission Date: 20211014
  Serious: Yes (Other)
  Sender: FDA-Public Use
  Company Number: PHHY2009CA23063

PATIENT
  Age: 43 Year
  Sex: Male

DRUGS (13)
  1. SANDOSTATIN LAR DEPOT [Suspect]
     Active Substance: OCTREOTIDE ACETATE
     Indication: ACROMEGALY
     Dosage: 20 MG, Q3W
     Route: 030
     Dates: start: 20030310
  2. SANDOSTATIN LAR DEPOT [Suspect]
     Active Substance: OCTREOTIDE ACETATE
     Dosage: 10 MG, Q3W
     Route: 030
     Dates: start: 20190228
  3. HYDROCHLOROTHIAZIDE. [Concomitant]
     Active Substance: HYDROCHLOROTHIAZIDE
     Indication: PRODUCT USED FOR UNKNOWN INDICATION
     Dosage: UNK UNK, QD (1/2 TAB)
     Route: 065
  4. SANDOSTATIN LAR DEPOT [Suspect]
     Active Substance: OCTREOTIDE ACETATE
     Dosage: 10 MG, Q3W
     Route: 030
     Dates: start: 20080819
  5. SANDOSTATIN LAR DEPOT [Suspect]
     Active Substance: OCTREOTIDE ACETATE
     Dosage: 20 MG, (EVERY 4 WEEKS) QMO
     Route: 030
     Dates: start: 20091206
  6. RAMIPRIL. [Concomitant]
     Active Substance: RAMIPRIL
     Indication: PRODUCT USED FOR UNKNOWN INDICATION
     Dosage: 50 MG, QD
     Route: 048
  7. SANDOSTATIN LAR DEPOT [Suspect]
     Active Substance: OCTREOTIDE ACETATE
     Dosage: 10 MG, (EVERY 4 WEEKS) QMO
     Route: 030
     Dates: start: 20090301
  8. SANDOSTATIN LAR DEPOT [Suspect]
     Active Substance: OCTREOTIDE ACETATE
     Dosage: 10 MG, Q3W
     Route: 030
     Dates: start: 20030310
  9. SANDOSTATIN LAR DEPOT [Suspect]
     Active Substance: OCTREOTIDE ACETATE
     Dosage: 10 MG, Q3W
     Route: 030
     Dates: start: 20130704
  10. SANDOSTATIN LAR DEPOT [Suspect]
     Active Substance: OCTREOTIDE ACETATE
     Dosage: 10 MG, (EVERY 4 WEEKS) QMO
     Route: 030
     Dates: start: 20080817
  11. SANDOSTATIN LAR DEPOT [Suspect]
     Active Substance: OCTREOTIDE ACETATE
     Dosage: 10 MG, (EVERY 4 WEEKS) QMO
     Route: 030
     Dates: start: 20130204
  12. SANDOSTATIN LAR DEPOT [Suspect]
     Active Substance: OCTREOTIDE ACETATE
     Dosage: 10 MG, Q3W
     Route: 030
     Dates: start: 20181206
  13. AMLODIPINE [Concomitant]
     Active Substance: AMLODIPINE BESYLATE
     Indication: PRODUCT USED FOR UNKNOWN INDICATION
     Dosage: 5 MG, BID
     Route: 048

REACTIONS (24)
  - Arthralgia [Not Recovered/Not Resolved]
  - Product availability issue [Unknown]
  - Nasopharyngitis [Unknown]
  - Sinusitis [Recovered/Resolved]
  - Vital capacity abnormal [Unknown]
  - Fatigue [Unknown]
  - Abdominal discomfort [Recovering/Resolving]
  - Blood pressure diastolic increased [Unknown]
  - Speech disorder [Unknown]
  - Body temperature decreased [Unknown]
  - Dizziness [Unknown]
  - Blood pressure increased [Unknown]
  - Pain [Recovered/Resolved]
  - Malaise [Unknown]
  - Bone pain [Unknown]
  - Asthenia [Unknown]
  - Headache [Unknown]
  - Joint stiffness [Unknown]
  - Milk allergy [Unknown]
  - Diarrhoea [Unknown]
  - Inappropriate schedule of product administration [Unknown]
  - Hypoacusis [Unknown]
  - Constipation [Unknown]
  - Nausea [Unknown]

NARRATIVE: CASE EVENT DATE: 20080819
